FAERS Safety Report 5390778-5 (Version None)
Quarter: 2007Q3

REPORT INFORMATION
  Report Type: 
  Country: None (occurrence: None)
  Receive Date: 20070718
  Receipt Date: 20070710
  Transmission Date: 20080115
  Serious: No
  Sender: FDA-Public Use
  Company Number: US-ELI_LILLY_AND_COMPANY-US200704006157

PATIENT
  Age: 78 Year
  Sex: Female
  Weight: 73.015 kg

DRUGS (9)
  1. FORTEO [Suspect]
     Indication: OSTEOPOROSIS
     Dosage: 20 UG, DAILY (1/D)
     Dates: start: 20060210
  2. DEMADEX [Concomitant]
  3. POTASSIUM CHLORIDE [Concomitant]
  4. PLAVIX [Concomitant]
  5. VICODIN [Concomitant]
  6. ALLOPURINOL [Concomitant]
  7. LOPRESSOR [Concomitant]
  8. ZETIA [Concomitant]
  9. IMDUR [Concomitant]

REACTIONS (10)
  - AMNESIA [None]
  - CELLULITIS [None]
  - FALL [None]
  - FEAR OF DISEASE [None]
  - HYPERSENSITIVITY [None]
  - OEDEMA PERIPHERAL [None]
  - PAIN [None]
  - PAIN IN EXTREMITY [None]
  - RASH [None]
  - SCOLIOSIS [None]
